FAERS Safety Report 20565912 (Version 1)
Quarter: 2022Q1

REPORT INFORMATION
  Report Type: Spontaneous
  Country: JP (occurrence: JP)
  Receive Date: 20220308
  Receipt Date: 20220308
  Transmission Date: 20220423
  Serious: Yes (Life-Threatening, Hospitalization, Other)
  Sender: FDA-Public Use
  Company Number: JP-ASTELLAS-2022JP003778

PATIENT
  Age: 84 Year
  Sex: Male

DRUGS (9)
  1. PROGRAF [Suspect]
     Active Substance: TACROLIMUS
     Indication: Myasthenia gravis
     Route: 048
     Dates: start: 2018
  2. WARFARIN [Suspect]
     Active Substance: WARFARIN
     Indication: Atrial fibrillation
     Dosage: 6 MG, UNKNOWN FREQ, ONGOING AFTER DOSE REDUCED
     Route: 048
     Dates: start: 1999
  3. WARFARIN [Suspect]
     Active Substance: WARFARIN
     Indication: Coronary artery bypass
  4. WARFARIN [Suspect]
     Active Substance: WARFARIN
     Indication: Aortic valve replacement
  5. PREDONINE [Suspect]
     Active Substance: PREDNISOLONE
     Indication: Myasthenia gravis
     Route: 048
     Dates: start: 2018
  6. EVENITY [Suspect]
     Active Substance: ROMOSOZUMAB-AQQG
     Indication: Osteoporosis
     Route: 058
     Dates: start: 20210501, end: 20210902
  7. CALCIUM LACTATE [Concomitant]
     Active Substance: CALCIUM LACTATE
     Indication: Product used for unknown indication
     Dosage: 2 G/DAY, UNKNOWN FREQ.
     Route: 065
     Dates: start: 20210501
  8. ZESTRIL [Concomitant]
     Active Substance: LISINOPRIL
     Indication: Hypertension
     Dosage: 10 MG/DAY, UNKNOWN FREQ.
     Route: 048
  9. CARVEDILOL [Concomitant]
     Active Substance: CARVEDILOL
     Indication: Hypertension
     Dosage: 20 MG/DAY, UNKNOWN FREQ.
     Route: 048

REACTIONS (3)
  - International normalised ratio increased [Unknown]
  - Prothrombin time prolonged [Unknown]
  - Cerebral haemorrhage [Recovered/Resolved with Sequelae]

NARRATIVE: CASE EVENT DATE: 20210101
